FAERS Safety Report 24785612 (Version 1)
Quarter: 2024Q4

REPORT INFORMATION
  Report Type: Spontaneous
  Country: US (occurrence: None)
  Receive Date: 20241228
  Receipt Date: 20241228
  Transmission Date: 20250114
  Serious: Yes (Other)
  Sender: Public
  Company Number: None

PATIENT
  Age: 48 Year
  Sex: Female
  Weight: 68.85 kg

DRUGS (2)
  1. MONISTAT 1 COMBINATION PACK [Suspect]
     Active Substance: MICONAZOLE NITRATE
     Dosage: ONCE AT BEDTIME VAGINAL
     Route: 067
     Dates: start: 20241226, end: 20241226
  2. VITAMINS [Concomitant]
     Active Substance: VITAMINS

REACTIONS (3)
  - Chemical burn of genitalia [None]
  - Vulvovaginal swelling [None]
  - Vaginal haemorrhage [None]

NARRATIVE: CASE EVENT DATE: 20241226
